FAERS Safety Report 6717889-3 (Version None)
Quarter: 2010Q2

REPORT INFORMATION
  Report Type: 
  Country: None (occurrence: None)
  Receive Date: 20100507
  Receipt Date: 20100507
  Transmission Date: 20101027
  Serious: Yes (Hospitalization)
  Sender: FDA-Public Use
  Company Number: None

PATIENT
  Sex: Female
  Weight: 66.73 kg

DRUGS (3)
  1. CARBOPLATIN [Suspect]
     Dosage: 579 MG
     Dates: end: 20100413
  2. TAXOTERE [Suspect]
     Dosage: 95 MG
     Dates: end: 20100413
  3. TAXOL [Suspect]
     Dosage: 109 MG
     Dates: end: 20100420

REACTIONS (15)
  - BLOOD ALBUMIN DECREASED [None]
  - BLOOD CALCIUM DECREASED [None]
  - BLOOD GLUCOSE INCREASED [None]
  - BLOOD POTASSIUM DECREASED [None]
  - BODY TEMPERATURE INCREASED [None]
  - CONSTIPATION [None]
  - EMPHYSEMA [None]
  - ESCHERICHIA INFECTION [None]
  - HAEMATOCRIT DECREASED [None]
  - HAEMOGLOBIN DECREASED [None]
  - PANCREATITIS CHRONIC [None]
  - PLATELET COUNT DECREASED [None]
  - PLEURAL FIBROSIS [None]
  - SINUS TACHYCARDIA [None]
  - UROSEPSIS [None]
